FAERS Safety Report 10266853 (Version 1)
Quarter: 2014Q2

REPORT INFORMATION
  Report Type: Spontaneous
  Country: US (occurrence: US)
  Receive Date: 20140630
  Receipt Date: 20140630
  Transmission Date: 20141212
  Serious: No
  Sender: FDA-Public Use
  Company Number: US-ASTRAZENECA-2014SE45490

PATIENT
  Age: 1044 Month
  Sex: Female
  Weight: 77.1 kg

DRUGS (6)
  1. SYMBICORT [Suspect]
     Indication: BENIGN LUNG NEOPLASM
     Dosage: 2 PUFFS BID
     Route: 055
     Dates: start: 201404
  2. SYMBICORT [Suspect]
     Indication: PNEUMOTHORAX
     Dosage: 2 PUFFS BID
     Route: 055
     Dates: start: 201404
  3. FLEXERIL [Concomitant]
     Indication: HYPERSENSITIVITY
     Dosage: UNKNOWN DAILY
     Route: 048
  4. TODORZA [Concomitant]
     Indication: DYSPNOEA
     Dosage: 1 PUFFS TWO TIMES A DAY
     Route: 055
     Dates: start: 201404
  5. ALLOPURINOL [Concomitant]
     Indication: ARTHRITIS
     Dosage: UNKNOWN DAILY
     Route: 048
  6. LASIX [Concomitant]
     Indication: PERICARDIAL EFFUSION
     Dosage: 40MG
     Route: 048

REACTIONS (2)
  - Vision blurred [Not Recovered/Not Resolved]
  - Intentional product misuse [Unknown]
